FAERS Safety Report 12359757 (Version 1)
Quarter: 2016Q2

REPORT INFORMATION
  Report Type: Spontaneous
  Country: US (occurrence: None)
  Receive Date: 20160511
  Receipt Date: 20160511
  Transmission Date: 20160815
  Serious: Yes (Life-Threatening)
  Sender: FDA-Public Use
  Company Number: None

PATIENT
  Age: 81 Year
  Sex: Male
  Weight: 80.29 kg

DRUGS (12)
  1. JANTOVEN [Suspect]
     Active Substance: WARFARIN SODIUM
     Indication: ARTERIOSCLEROSIS CORONARY ARTERY
     Route: 048
     Dates: start: 20160101, end: 20160510
  2. LASIX [Concomitant]
     Active Substance: FUROSEMIDE
  3. ZETIA [Concomitant]
     Active Substance: EZETIMIBE
  4. PROTONIX [Concomitant]
     Active Substance: PANTOPRAZOLE SODIUM
  5. L-THYROXINE [Concomitant]
     Active Substance: LEVOTHYROXINE
  6. JANTOVEN [Suspect]
     Active Substance: WARFARIN SODIUM
     Indication: CEREBRAL ARTERIOSCLEROSIS
     Route: 048
     Dates: start: 20160101, end: 20160510
  7. FLOMAX [Concomitant]
     Active Substance: TAMSULOSIN HYDROCHLORIDE
  8. CLONIDINE. [Concomitant]
     Active Substance: CLONIDINE
  9. ALLEGRA [Concomitant]
     Active Substance: FEXOFENADINE HYDROCHLORIDE
  10. LISINOPRIL. [Concomitant]
     Active Substance: LISINOPRIL
  11. UROXATROL [Concomitant]
  12. PROSCAR [Concomitant]
     Active Substance: FINASTERIDE

REACTIONS (2)
  - International normalised ratio decreased [None]
  - Drug ineffective [None]

NARRATIVE: CASE EVENT DATE: 20160510
